FAERS Safety Report 16268519 (Version 1)
Quarter: 2019Q2

REPORT INFORMATION
  Report Type: Other
  Country: US (occurrence: US)
  Receive Date: 20190503
  Receipt Date: 20190503
  Transmission Date: 20190711
  Serious: Yes (Life-Threatening)
  Sender: FDA-Public Use
  Company Number: US-ORCHID HEALTHCARE-2066574

PATIENT
  Age: 61 Year
  Sex: Female

DRUGS (1)
  1. SUMATRIPTAN. [Suspect]
     Active Substance: SUMATRIPTAN
     Indication: MIGRAINE
     Route: 065

REACTIONS (3)
  - Cardiac arrest [Recovering/Resolving]
  - Ventricular arrhythmia [Recovering/Resolving]
  - Arteriospasm coronary [Recovering/Resolving]
